APPROVED DRUG PRODUCT: RISPERIDONE
Active Ingredient: RISPERIDONE
Strength: 2MG
Dosage Form/Route: TABLET, ORALLY DISINTEGRATING;ORAL
Application: A076908 | Product #003
Applicant: CHARTWELL RX SCIENCES LLC
Approved: Mar 12, 2012 | RLD: No | RS: No | Type: DISCN